FAERS Safety Report 21512928 (Version 1)
Quarter: 2022Q4

REPORT INFORMATION
  Report Type: Spontaneous
  Country: CA (occurrence: CA)
  Receive Date: 20221027
  Receipt Date: 20221027
  Transmission Date: 20230113
  Serious: Yes (Death, Other)
  Sender: FDA-Public Use
  Company Number: CA-ALKEM LABORATORIES LIMITED-CA-ALKEM-2022-11264

PATIENT
  Age: 32 Year
  Sex: Female

DRUGS (4)
  1. ISONIAZID [Suspect]
     Active Substance: ISONIAZID
     Indication: Latent tuberculosis
     Dosage: UNK
     Route: 065
  2. ARTEMETHER [Concomitant]
     Active Substance: ARTEMETHER
     Indication: Malaria
     Dosage: UNK
     Route: 065
  3. CALCIUM [Concomitant]
     Active Substance: CALCIUM
     Indication: Malaria
     Dosage: UNK
     Route: 065
  4. LUMEFANTRINE [Concomitant]
     Active Substance: LUMEFANTRINE
     Indication: Malaria
     Dosage: UNK
     Route: 065

REACTIONS (1)
  - Death [Fatal]
